FAERS Safety Report 9870922 (Version 2)
Quarter: 2014Q1

REPORT INFORMATION
  Report Type: Report from Study
  Country: SE (occurrence: DE)
  Receive Date: 20140205
  Receipt Date: 20140205
  Transmission Date: 20141002
  Serious: Yes (Other)
  Sender: FDA-Public Use
  Company Number: DE-PFIZER INC-2014020642

PATIENT
  Age: 70 Year
  Sex: Female

DRUGS (4)
  1. ZOLEDRONIC ACID [Suspect]
     Indication: OSTEOPOROSIS PROPHYLAXIS
     Dosage: 4 MG, EVERY 3 MONTHS
     Route: 042
  2. ZOLEDRONIC ACID [Suspect]
     Indication: BREAST CANCER
  3. PAMIDRONATE DISODIUM [Suspect]
     Indication: OSTEOPOROSIS PROPHYLAXIS
     Dosage: 90 MG, EVERY 3 MONTHS
  4. PAMIDRONATE DISODIUM [Suspect]
     Indication: BREAST CANCER

REACTIONS (1)
  - Osteonecrosis [Recovered/Resolved]
